FAERS Safety Report 5056515-9 (Version None)
Quarter: 2006Q2

REPORT INFORMATION
  Report Type: 
  Country: None (occurrence: None)
  Receive Date: 20060616
  Receipt Date: 20060509
  Transmission Date: 20061013
  Serious: No
  Sender: FDA-Public Use
  Company Number: 2006US001092

PATIENT
  Age: 86 Year
  Sex: Female

DRUGS (7)
  1. VESICARE [Suspect]
     Indication: HYPERTONIC BLADDER
     Dosage: 5 MG, BID, ORAL
     Route: 048
     Dates: start: 20060503
  2. TOPROL-XL [Concomitant]
  3. ATACAND [Concomitant]
  4. ACIPHEX [Concomitant]
  5. SYNTHROID [Concomitant]
  6. ASPIRIN [Concomitant]
  7. LIPITOR [Concomitant]

REACTIONS (1)
  - SLEEP DISORDER [None]
